FAERS Safety Report 8112353-1 (Version None)
Quarter: 2012Q1

REPORT INFORMATION
  Report Type: 
  Country: None (occurrence: None)
  Receive Date: 20120131
  Receipt Date: 20120117
  Transmission Date: 20120608
  Serious: Yes (Death)
  Sender: FDA-Public Use
  Company Number: FK201200117

PATIENT
  Age: 49 Year
  Sex: Female

DRUGS (4)
  1. BUTALBITAL [Suspect]
     Indication: INTENTIONAL DRUG MISUSE
     Dosage: ,   , PARENTERAL
     Route: 048
  2. DIPHENHYDRAMINE HYDROCHLORIDE [Suspect]
     Indication: INTENTIONAL DRUG MISUSE
     Route: 051
  3. OXYCODONE HCL [Suspect]
     Indication: INTENTIONAL DRUG MISUSE
     Dosage: ,  , PARENTERAL
     Route: 048
  4. CITALOPRAM HYDROBROMIDE [Suspect]
     Indication: INTENTIONAL DRUG MISUSE
     Dosage: ,   , PARENTERAL
     Route: 048

REACTIONS (1)
  - INTENTIONAL DRUG MISUSE [None]
